FAERS Safety Report 9638804 (Version 1)
Quarter: 2013Q4

REPORT INFORMATION
  Report Type: Spontaneous
  Country: US (occurrence: US)
  Receive Date: 20131022
  Receipt Date: 20131022
  Transmission Date: 20140711
  Serious: No
  Sender: FDA-Public Use
  Company Number: US-BRISTOL-MYERS SQUIBB COMPANY-19390129

PATIENT
  Sex: Female

DRUGS (5)
  1. ELIQUIS [Suspect]
  2. QUININE SULFATE [Suspect]
     Indication: MUSCLE SPASMS
     Dosage: 1 PILL
  3. SIMVASTATIN [Concomitant]
     Indication: BLOOD CHOLESTEROL INCREASED
  4. METOPROLOL [Concomitant]
     Indication: ATRIAL FIBRILLATION
  5. CARTIA XT [Concomitant]

REACTIONS (1)
  - Rash [Recovered/Resolved]
